FAERS Safety Report 8932720 (Version 2)
Quarter: 2013Q1

REPORT INFORMATION
  Report Type: Spontaneous
  Country: US (occurrence: US)
  Receive Date: 20121129
  Receipt Date: 20130317
  Transmission Date: 20140127
  Serious: No
  Sender: FDA-Public Use
  Company Number: US-009507513-1211USA011866

PATIENT
  Age: 57 Year
  Sex: Female
  Weight: 77.1 kg

DRUGS (4)
  1. VICTRELIS [Suspect]
     Indication: HEPATITIS C
     Dosage: 4 DF, TID
     Route: 048
     Dates: start: 20121105
  2. PEGINTRON [Suspect]
     Indication: HEPATITIS C
     Dosage: REDIPEN: 120MCG/0.5ML
     Route: 058
  3. RIBASPHERE [Suspect]
     Indication: HEPATITIS C
     Dosage: 2CAPSULES QAM, 3 CAPSULES QPM
     Route: 048
  4. AMLODIPINE BESYLATE [Concomitant]
     Dosage: 10 MG, QD
     Route: 048

REACTIONS (4)
  - Lethargy [Not Recovered/Not Resolved]
  - Abasia [Not Recovered/Not Resolved]
  - Fatigue [Not Recovered/Not Resolved]
  - Asthenia [Not Recovered/Not Resolved]
